FAERS Safety Report 8826541 (Version 1)
Quarter: 2012Q4

REPORT INFORMATION
  Report Type: 
  Country: DE (occurrence: DE)
  Receive Date: 20121005
  Receipt Date: 20121005
  Transmission Date: 20130627
  Serious: Yes (Other)
  Sender: FDA-Public Use
  Company Number: DE-ROCHE-1109322

PATIENT
  Age: 84 Year
  Sex: Female

DRUGS (7)
  1. LUCENTIS [Suspect]
     Indication: PRODUCT USED FOR UNKNOWN INDICATION
     Route: 050
     Dates: start: 20120702
  2. LUCENTIS [Suspect]
     Route: 050
     Dates: start: 20120731
  3. LISINOPRIL [Suspect]
     Indication: PRODUCT USED FOR UNKNOWN INDICATION
     Route: 048
     Dates: start: 20120802, end: 20120802
  4. ACE INHIBITOR (UNK INGREDIENTS) [Concomitant]
     Route: 065
  5. MOXONIDINE [Concomitant]
     Route: 065
  6. CANDESARTAN [Concomitant]
     Route: 065
     Dates: start: 20120802
  7. HYDROCHLOROTHIAZIDE [Concomitant]
     Route: 065

REACTIONS (1)
  - Angioedema [Recovered/Resolved]
